FAERS Safety Report 21891856 (Version 1)
Quarter: 2023Q1

REPORT INFORMATION
  Report Type: Spontaneous
  Country: GB (occurrence: GB)
  Receive Date: 20230120
  Receipt Date: 20230120
  Transmission Date: 20230417
  Serious: Yes (Life-Threatening, Hospitalization, Other)
  Sender: FDA-Public Use
  Company Number: GB-AMGEN-GBRSP2022226261

PATIENT
  Age: 56 Year
  Sex: Male

DRUGS (3)
  1. ADALIMUMAB [Suspect]
     Active Substance: ADALIMUMAB
     Indication: Product used for unknown indication
     Dosage: 40 MILLIGRAM, Q2WK
     Route: 050
  2. METHOTREXATE [Suspect]
     Active Substance: METHOTREXATE
     Indication: Product used for unknown indication
     Dosage: 5 MILLIGRAM, QWK
     Route: 050
  3. METHOTREXATE [Suspect]
     Active Substance: METHOTREXATE
     Dosage: UNK
     Route: 050

REACTIONS (3)
  - Infection [Not Recovered/Not Resolved]
  - Arthritis bacterial [Not Recovered/Not Resolved]
  - Muscle abscess [Not Recovered/Not Resolved]

NARRATIVE: CASE EVENT DATE: 20221210
